FAERS Safety Report 18993151 (Version 1)
Quarter: 2021Q1

REPORT INFORMATION
  Report Type: Spontaneous
  Country: DE (occurrence: DE)
  Receive Date: 20210310
  Receipt Date: 20210310
  Transmission Date: 20210420
  Serious: Yes (Life-Threatening, Hospitalization)
  Sender: FDA-Public Use
  Company Number: DE-PURDUE-USA-2021-0230881

PATIENT
  Age: 66 Year
  Sex: Male

DRUGS (13)
  1. FUROSEMID                          /00032601/ [Suspect]
     Active Substance: FUROSEMIDE
     Indication: PRODUCT USED FOR UNKNOWN INDICATION
     Dosage: 40 MG, BID (1?1?0?0)
     Route: 065
  2. RIVAROXABAN [Concomitant]
     Active Substance: RIVAROXABAN
     Dosage: 20 MG, DAILY (1?0?0?0)
  3. INSULIN DETEMIR [Concomitant]
     Active Substance: INSULIN DETEMIR
     Dosage: 1 IE, 16?0?12?0
  4. MACROGOL [Concomitant]
     Active Substance: POLYETHYLENE GLYCOLS
     Dosage: UNK UNK, DAILY (0?0?1?0)
  5. ATORVASTATIN [Concomitant]
     Active Substance: ATORVASTATIN
     Dosage: 80 MG, DAILY (0?0?1?0)
  6. MORPHINE SULFATE (SIMILAR TO NDA 19?516) [Suspect]
     Active Substance: MORPHINE SULFATE
     Indication: PRODUCT USED FOR UNKNOWN INDICATION
     Dosage: 10 MG, BID (2?0?2?0)
     Route: 065
  7. MELPERON [Concomitant]
     Active Substance: MELPERONE
     Dosage: 100 MG, DAILY (0?0?1?0)
  8. RANITIDIN [Concomitant]
     Active Substance: RANITIDINE HYDROCHLORIDE
     Dosage: 150 MG, BID (1?0?1?0)
  9. BISOPROLOL [Concomitant]
     Active Substance: BISOPROLOL
     Dosage: 2.5 MG, BID (1?0?1?0)
  10. DIGITOXIN [Concomitant]
     Active Substance: DIGITOXIN
     Dosage: 0.25 MG, DAILY (1?0?0?0)
  11. FENTANYL. [Suspect]
     Active Substance: FENTANYL
     Indication: PRODUCT USED FOR UNKNOWN INDICATION
     Dosage: 0.025 G, UNK (0.025 G, WECHSEL ALLE DREI TAGE)
     Route: 065
  12. ESOMEPRAZOL                        /01479301/ [Concomitant]
     Active Substance: ESOMEPRAZOLE
     Dosage: 40 MG, DAILY (1?0?0?0)
  13. TORASEMID [Concomitant]
     Active Substance: TORSEMIDE
     Dosage: 1.25 MG, BID (1?0?1?0)

REACTIONS (5)
  - Constipation [Unknown]
  - Disorientation [Unknown]
  - General physical health deterioration [Unknown]
  - Confusional state [Unknown]
  - Dehydration [Unknown]
